FAERS Safety Report 4310256-1 (Version None)
Quarter: 2004Q1

REPORT INFORMATION
  Report Type: 
  Country: None (occurrence: None)
  Receive Date: 20040301
  Receipt Date: 20040301
  Transmission Date: 20041129
  Serious: No
  Sender: FDA-Public Use
  Company Number: None

PATIENT
  Age: 48 Year
  Sex: Female
  Weight: 68.0396 kg

DRUGS (1)
  1. EFFEXOR [Suspect]
     Indication: DEPRESSION
     Dosage: 37.5 MG 48 HOURS ORAL
     Route: 048

REACTIONS (7)
  - DIZZINESS [None]
  - DRUG DEPENDENCE [None]
  - HEART RATE INCREASED [None]
  - MIGRAINE [None]
  - PANIC DISORDER [None]
  - TINNITUS [None]
  - TREMOR [None]
